FAERS Safety Report 4565880-8 (Version None)
Quarter: 2005Q1

REPORT INFORMATION
  Report Type: 
  Country: None (occurrence: None)
  Receive Date: 20050131
  Receipt Date: 20050121
  Transmission Date: 20050727
  Serious: Yes (Hospitalization)
  Sender: FDA-Public Use
  Company Number: US-AMGEN-US109123

PATIENT
  Sex: Male

DRUGS (5)
  1. DARBEPOETIN ALFA [Suspect]
     Indication: ANAEMIA
     Route: 030
     Dates: start: 20040928, end: 20050107
  2. HYDROCHLOROTHIAZIDE [Concomitant]
  3. LISINOPRIL [Concomitant]
  4. METFORMIN HCL [Concomitant]
  5. NPH INSULIN [Concomitant]

REACTIONS (3)
  - BRADYCARDIA [None]
  - DIZZINESS [None]
  - HYPERTENSION [None]
